FAERS Safety Report 15849950 (Version 3)
Quarter: 2020Q4

REPORT INFORMATION
  Report Type: Report from Study
  Country: US (occurrence: US)
  Receive Date: 20190121
  Receipt Date: 20201211
  Transmission Date: 20210113
  Serious: No
  Sender: FDA-Public Use
  Company Number: US-SA-2019SA011625

PATIENT

DRUGS (18)
  1. BACLOFEN. [Concomitant]
     Active Substance: BACLOFEN
  2. GABAPENTIN. [Concomitant]
     Active Substance: GABAPENTIN
  3. LEXAPRO [Concomitant]
     Active Substance: ESCITALOPRAM OXALATE
  4. LEVOTHYROXIN [Concomitant]
     Active Substance: LEVOTHYROXINE
  5. CLONAZEPAM. [Concomitant]
     Active Substance: CLONAZEPAM
     Indication: ANXIETY
     Dosage: UNK
  6. ACETAMINOPHEN. [Concomitant]
     Active Substance: ACETAMINOPHEN
  7. TERIFLUNOMIDE. [Suspect]
     Active Substance: TERIFLUNOMIDE
     Indication: RELAPSING-REMITTING MULTIPLE SCLEROSIS
     Dosage: 14 MG, QD
     Route: 048
     Dates: start: 20171025
  8. AMBIEN [Concomitant]
     Active Substance: ZOLPIDEM TARTRATE
  9. DETROL [Concomitant]
     Active Substance: TOLTERODINE TARTRATE
  10. ESTRADIOL. [Concomitant]
     Active Substance: ESTRADIOL
  11. BELSOMRA [Concomitant]
     Active Substance: SUVOREXANT
  12. COZAAR [Concomitant]
     Active Substance: LOSARTAN POTASSIUM
     Indication: BLOOD PRESSURE INCREASED
     Dosage: UNK
  13. IMODIUM A-D [Concomitant]
     Active Substance: LOPERAMIDE HYDROCHLORIDE
  14. TRAMADOL HCL [Concomitant]
     Active Substance: TRAMADOL HYDROCHLORIDE
  15. BACLOFEN. [Concomitant]
     Active Substance: BACLOFEN
  16. MAXALT [Concomitant]
     Active Substance: RIZATRIPTAN BENZOATE
  17. PRILOSEC [Concomitant]
     Active Substance: OMEPRAZOLE MAGNESIUM
  18. PROMETHAZINE [Concomitant]
     Active Substance: PROMETHAZINE HYDROCHLORIDE

REACTIONS (15)
  - Teeth brittle [Unknown]
  - Visual impairment [Unknown]
  - Blood pressure increased [Recovering/Resolving]
  - Meniscus injury [Recovering/Resolving]
  - Product use complaint [Unknown]
  - Insomnia [Recovering/Resolving]
  - Fall [Unknown]
  - Limb injury [Unknown]
  - Nail disorder [Unknown]
  - Dyspepsia [Recovering/Resolving]
  - Anxiety [Recovering/Resolving]
  - Fatigue [Unknown]
  - Hair texture abnormal [Not Recovered/Not Resolved]
  - Memory impairment [Unknown]
  - Fluid retention [Recovering/Resolving]

NARRATIVE: CASE EVENT DATE: 2018
